FAERS Safety Report 5008487-0 (Version None)
Quarter: 2006Q2

REPORT INFORMATION
  Report Type: 
  Country: None (occurrence: None)
  Receive Date: 20060522
  Receipt Date: 20060522
  Transmission Date: 20061013
  Serious: Yes (Other)
  Sender: FDA-Public Use
  Company Number: None

PATIENT
  Age: 55 Year
  Sex: Male
  Weight: 104.3273 kg

DRUGS (2)
  1. AVELOX [Suspect]
     Indication: LYMPHADENOPATHY
     Dosage: 1 OR 2 DAILY   PO
     Route: 048
     Dates: start: 20060210, end: 20060225
  2. CIPROFLOXACIN [Suspect]
     Indication: TESTICULAR PAIN
     Dosage: 500MG  2 DAILY  PO
     Route: 048
     Dates: start: 20060319, end: 20060405

REACTIONS (17)
  - ABDOMINAL PAIN UPPER [None]
  - ARTHRALGIA [None]
  - ARTHROPATHY [None]
  - GALLBLADDER DISORDER [None]
  - GASTRIC DISORDER [None]
  - GASTROINTESTINAL DISORDER [None]
  - GASTROINTESTINAL PAIN [None]
  - HYPERSOMNIA [None]
  - MORTON'S NEUROMA [None]
  - NIGHT SWEATS [None]
  - NO REACTION ON PREVIOUS EXPOSURE TO DRUG [None]
  - ORCHITIS NONINFECTIVE [None]
  - PAIN IN EXTREMITY [None]
  - PARAESTHESIA [None]
  - PERIPHERAL COLDNESS [None]
  - SALIVARY GLAND DISORDER [None]
  - TENDON DISORDER [None]
